FAERS Safety Report 8564145-7 (Version None)
Quarter: 2012Q3

REPORT INFORMATION
  Report Type: 
  Country: None (occurrence: None)
  Receive Date: 20120803
  Receipt Date: 20120726
  Transmission Date: 20120928
  Serious: No
  Sender: FDA-Public Use
  Company Number: US-JNJFOC-20120713644

PATIENT
  Sex: Male

DRUGS (6)
  1. PERPHENAZINE [Concomitant]
     Route: 065
  2. INVEGA SUSTENNA [Suspect]
     Indication: SCHIZOPHRENIA
     Route: 030
  3. OLANZAPINE [Concomitant]
     Route: 065
  4. INVEGA [Suspect]
     Route: 048
  5. INVEGA [Suspect]
     Indication: SCHIZOPHRENIA
     Route: 048
  6. INVEGA SUSTENNA [Suspect]
     Route: 030
     Dates: start: 20120217

REACTIONS (1)
  - SCHIZOPHRENIA [None]
